FAERS Safety Report 21578383 (Version 1)
Quarter: 2022Q4

REPORT INFORMATION
  Report Type: Spontaneous
  Country: PT (occurrence: PT)
  Receive Date: 20221110
  Receipt Date: 20221110
  Transmission Date: 20230113
  Serious: Yes (Other)
  Sender: FDA-Public Use
  Company Number: None

PATIENT
  Age: 30 Year
  Sex: Female
  Weight: 66.5 kg

DRUGS (1)
  1. ETONOGESTREL [Suspect]
     Active Substance: ETONOGESTREL
     Indication: Contraception
     Dosage: 4TH IMPLANT INSERTED
     Route: 058
     Dates: start: 20220919, end: 20221024

REACTIONS (1)
  - Administration site eczema [Unknown]

NARRATIVE: CASE EVENT DATE: 20221011
